FAERS Safety Report 18247376 (Version 1)
Quarter: 2020Q3

REPORT INFORMATION
  Report Type: Spontaneous
  Country: US (occurrence: US)
  Receive Date: 20200909
  Receipt Date: 20200909
  Transmission Date: 20201103
  Serious: Yes (Hospitalization)
  Sender: FDA-Public Use
  Company Number: US-FRESENIUS KABI-FK202009195

PATIENT
  Age: 64 Year
  Sex: Male

DRUGS (4)
  1. IRINOTECAN MONOHYDROCHLORIDE TRIHYDRATE [Suspect]
     Active Substance: IRINOTECAN HYDROCHLORIDE
     Indication: DUCTAL ADENOCARCINOMA OF PANCREAS
     Dosage: ONIVYDE (LIPOSOMAL IRINOTECAN), LAST DOSE PRIOR TO EVENT ONSET WAS 30/JAN/2020
     Route: 065
  2. PARICALCITOL. [Suspect]
     Active Substance: PARICALCITOL
     Route: 065
     Dates: start: 20200206
  3. FLUOROURACIL (MANUFACTURER UNKNOWN) [Suspect]
     Active Substance: FLUOROURACIL
     Indication: DUCTAL ADENOCARCINOMA OF PANCREAS
     Dosage: LAST DOSE PRIOR TO EVENT ONSET WAS 30/JAN/2020
     Route: 065
  4. PARICALCITOL. [Suspect]
     Active Substance: PARICALCITOL
     Indication: DUCTAL ADENOCARCINOMA OF PANCREAS
     Dosage: (75 MCG WEEKLY, 2 WEEKS ON, 1 WEEK OFF) (LAST DOSE PRIOR TO EVENT ONSET WAS 30/JAN/2020)
     Route: 065

REACTIONS (3)
  - Vomiting [Recovering/Resolving]
  - Nausea [Recovering/Resolving]
  - Hyperglycaemia [Recovering/Resolving]

NARRATIVE: CASE EVENT DATE: 20200204
